FAERS Safety Report 19198303 (Version 1)
Quarter: 2021Q2

REPORT INFORMATION
  Report Type: Spontaneous
  Country: ES (occurrence: ES)
  Receive Date: 20210430
  Receipt Date: 20210430
  Transmission Date: 20210717
  Serious: Yes (Hospitalization, Other)
  Sender: FDA-Public Use
  Company Number: ES-AUROBINDO-AUR-APL-2021-017534

PATIENT
  Age: 87 Year
  Sex: Male

DRUGS (2)
  1. BISOPROLOL [Suspect]
     Active Substance: BISOPROLOL
     Indication: ATRIAL FLUTTER
     Dosage: UNK (1?0?0)
     Route: 048
     Dates: start: 20201216
  2. AMIODARONE [Suspect]
     Active Substance: AMIODARONE
     Indication: ATRIAL FLUTTER
     Dosage: 200 MILLIGRAM, ONCE A DAY (1?0?0 FROM MONDAY TO FRIDAY)
     Route: 048
     Dates: start: 20201216, end: 20210119

REACTIONS (1)
  - Atrioventricular block complete [Recovered/Resolved]

NARRATIVE: CASE EVENT DATE: 20210119
